FAERS Safety Report 4665944-4 (Version None)
Quarter: 2005Q2

REPORT INFORMATION
  Report Type: 
  Country: None (occurrence: None)
  Receive Date: 20050518
  Receipt Date: 20050509
  Transmission Date: 20051028
  Serious: Yes (Death)
  Sender: FDA-Public Use
  Company Number: GXBR2005US00888

PATIENT
  Age: 81 Year
  Sex: Female

DRUGS (1)
  1. LORAZEPAM TABLETS USP (NGX) (LORAZEPAM) TABLET [Suspect]
     Indication: ANXIETY
     Dosage: 0.5 MG, Q8H, ORAL
     Route: 048
     Dates: start: 20031214, end: 20031221

REACTIONS (2)
  - ADVERSE EVENT [None]
  - MEDICATION ERROR [None]
